FAERS Safety Report 16853507 (Version 1)
Quarter: 2019Q3

REPORT INFORMATION
  Report Type: Report from Study
  Country: US (occurrence: US)
  Receive Date: 20190926
  Receipt Date: 20190926
  Transmission Date: 20191005
  Serious: Yes (Hospitalization)
  Sender: FDA-Public Use
  Company Number: US-BIOGEN-2019BI00785863

PATIENT
  Sex: Female

DRUGS (1)
  1. TECFIDERA [Suspect]
     Active Substance: DIMETHYL FUMARATE
     Indication: MULTIPLE SCLEROSIS
     Route: 048
     Dates: start: 201606

REACTIONS (5)
  - Scoliosis [Unknown]
  - Arthritis [Unknown]
  - Intervertebral disc degeneration [Unknown]
  - Foot fracture [Unknown]
  - Intervertebral disc protrusion [Unknown]
